FAERS Safety Report 5510210-8 (Version None)
Quarter: 2007Q4

REPORT INFORMATION
  Report Type: 
  Country: None (occurrence: None)
  Receive Date: 20071106
  Receipt Date: 20071025
  Transmission Date: 20080405
  Serious: Yes (Hospitalization)
  Sender: FDA-Public Use
  Company Number: KADN20070103

PATIENT
  Age: 93 Year
  Sex: Male

DRUGS (7)
  1. MORPHINE [Suspect]
     Indication: CANCER PAIN
     Dosage: ORAL
     Route: 048
     Dates: start: 20060830, end: 20060907
  2. LOXOPROFEN [Concomitant]
  3. ALLOPURINOL [Concomitant]
  4. AMIKACIN SULFATE [Concomitant]
  5. REBAMIPIDE [Concomitant]
  6. MAGNESIUM OXIDE [Concomitant]
  7. GLYSENNID [Concomitant]

REACTIONS (6)
  - ALTERED STATE OF CONSCIOUSNESS [None]
  - DYSPNOEA [None]
  - INSOMNIA [None]
  - NAUSEA [None]
  - URINARY INCONTINENCE [None]
  - VOMITING [None]
